FAERS Safety Report 14092121 (Version 6)
Quarter: 2021Q4

REPORT INFORMATION
  Report Type: Report from Study
  Country: FR (occurrence: None)
  Receive Date: 20171016
  Receipt Date: 20211109
  Transmission Date: 20220303
  Serious: Yes (Death, Life-Threatening)
  Sender: FDA-Public Use
  Company Number: FR-ROCHE-2006995

PATIENT
  Age: 69 Year
  Sex: Female

DRUGS (7)
  1. BEVACIZUMAB [Suspect]
     Active Substance: BEVACIZUMAB
     Indication: Ovarian cancer
     Dosage: LAST DOSE PRIOR TO THE EVENT: 01/SEP/2017
     Route: 042
     Dates: start: 20170721, end: 20170915
  2. CARBOPLATIN [Suspect]
     Active Substance: CARBOPLATIN
     Indication: Ovarian cancer
     Dosage: LAST DOSE PRIOR TO THE EVENT: 01/SEP/2017
     Route: 042
     Dates: start: 20170721, end: 20170915
  3. ATEZOLIZUMAB [Suspect]
     Active Substance: ATEZOLIZUMAB
     Indication: Ovarian cancer
     Dosage: LAST DOSE: 01/SEP/2017 PRIOR TO THE EVENT
     Route: 041
     Dates: start: 20170721, end: 20170915
  4. DOXORUBICIN [Suspect]
     Active Substance: DOXORUBICIN
     Indication: Ovarian cancer
     Dosage: LAST DOSE PRIOR TO THE EVENT: 18/AUG/2017
     Route: 042
     Dates: start: 20170721, end: 20170915
  5. INNOHEP [Concomitant]
     Active Substance: TINZAPARIN SODIUM
  6. ESOMEPRAZOLE [Concomitant]
     Active Substance: ESOMEPRAZOLE
  7. METEOSPASMYL [Concomitant]

REACTIONS (2)
  - Myelodysplastic syndrome [Fatal]
  - Myocarditis [Recovered/Resolved]

NARRATIVE: CASE EVENT DATE: 20170915
